FAERS Safety Report 22398185 (Version 1)
Quarter: 2023Q2

REPORT INFORMATION
  Report Type: Report from Study
  Country: ES (occurrence: ES)
  Receive Date: 20230602
  Receipt Date: 20230602
  Transmission Date: 20230721
  Serious: Yes (Hospitalization)
  Sender: FDA-Public Use
  Company Number: ES-BRISTOL-MYERS SQUIBB COMPANY-2023-075968

PATIENT
  Age: 68 Year
  Sex: Male
  Weight: 70 kg

DRUGS (4)
  1. PIMECROLIMUS [Concomitant]
     Active Substance: PIMECROLIMUS
     Indication: Product used for unknown indication
     Dosage: 1 DF = 2 UNIT NOS
     Route: 061
     Dates: start: 20220113
  2. CALCIPOTRIOL FOAM [Concomitant]
     Indication: Skin lesion
     Dosage: 1 DF= 100 UNIT NOS
     Route: 061
     Dates: start: 20221213
  3. VASELIX 20% CREAM [Concomitant]
     Indication: Skin lesion
     Dosage: 1 DF= 20 UNIT NOS
     Route: 061
     Dates: start: 20221213
  4. LORATADINE [Concomitant]
     Active Substance: LORATADINE
     Indication: Pruritus
     Route: 048
     Dates: start: 20230110

REACTIONS (1)
  - Erythrodermic psoriasis [Recovered/Resolved with Sequelae]

NARRATIVE: CASE EVENT DATE: 20230311
